FAERS Safety Report 7861588-1 (Version None)
Quarter: 2011Q4

REPORT INFORMATION
  Report Type: 
  Country: None (occurrence: None)
  Receive Date: 20111027
  Receipt Date: 20111026
  Transmission Date: 20120403
  Serious: Yes (Hospitalization)
  Sender: FDA-Public Use
  Company Number: ES-SHIRE-SPV1-2011-01287

PATIENT
  Age: 43 Year
  Sex: Female
  Weight: 62.7 kg

DRUGS (11)
  1. REPLAGAL [Suspect]
     Indication: FABRY'S DISEASE
     Dosage: UNK ALTERNATE 3 OR 4 VIALS
     Route: 041
     Dates: start: 20040520
  2. MYOLASTAN [Concomitant]
     Indication: PRODUCT USED FOR UNKNOWN INDICATION
     Dosage: 0.5 DF, 2X/DAY:BID
  3. RAMIPRIL [Concomitant]
     Indication: MICROALBUMINURIA
     Dosage: 5 MG, 1X/DAY:QD
  4. ACETAMINOPHEN [Concomitant]
     Indication: PRODUCT USED FOR UNKNOWN INDICATION
     Dosage: UNK, AS REQ'D
  5. PANTOPRAZOLE [Concomitant]
     Indication: PRODUCT USED FOR UNKNOWN INDICATION
     Dosage: 20 UNK, 1X/DAY:QD
  6. SIMVASTATIN [Concomitant]
     Indication: PRODUCT USED FOR UNKNOWN INDICATION
     Dosage: 40 UNK, 1X/DAY:QD
  7. CANDESARTAN CILEXETIL [Concomitant]
     Indication: MICROALBUMINURIA
     Dosage: 4 MG, 1X/DAY:QD
  8. NOLOTIL                            /00473101/ [Concomitant]
     Indication: PRODUCT USED FOR UNKNOWN INDICATION
     Dosage: UNK, AS REQ'D
  9. ALPRAZOLAM [Concomitant]
     Indication: PRODUCT USED FOR UNKNOWN INDICATION
     Dosage: 1 MG, 2X/DAY:BID
  10. ESCITALOPRAM [Concomitant]
     Indication: PRODUCT USED FOR UNKNOWN INDICATION
     Dosage: 1 DF, 1X/DAY:QD
  11. LYRICA [Concomitant]
     Indication: PRODUCT USED FOR UNKNOWN INDICATION
     Dosage: 25 UNK, 2X/DAY:BID

REACTIONS (1)
  - SIGMOIDITIS [None]
